FAERS Safety Report 9344543 (Version 2)
Quarter: 2013Q3

REPORT INFORMATION
  Report Type: Spontaneous
  Country: CH (occurrence: CH)
  Receive Date: 20130612
  Receipt Date: 20130702
  Transmission Date: 20140515
  Serious: Yes (Life-Threatening, Hospitalization)
  Sender: FDA-Public Use
  Company Number: CH-BAYER-2013-069081

PATIENT
  Age: 63 Year
  Sex: Female

DRUGS (1)
  1. NEXAVAR [Suspect]
     Indication: ANAPLASTIC MENINGIOMA
     Dosage: DAILY DOSE 400 MG
     Route: 048
     Dates: start: 20130313, end: 20130530

REACTIONS (2)
  - Anaplastic meningioma [Unknown]
  - Off label use [Unknown]
